FAERS Safety Report 10792698 (Version 3)
Quarter: 2015Q2

REPORT INFORMATION
  Report Type: Report from Study
  Country: US (occurrence: None)
  Receive Date: 20150211
  Receipt Date: 20150527
  Transmission Date: 20150821
  Serious: Yes (Hospitalization)
  Sender: FDA-Public Use
  Company Number: US-001674

PATIENT
  Age: 39 Year
  Sex: Female

DRUGS (9)
  1. GATTEX [Suspect]
     Active Substance: TEDUGLUTIDE\WATER
     Indication: SHORT-BOWEL SYNDROME
     Dosage: DF
     Route: 058
     Dates: start: 201409
  2. SOLUTIONS FOR PARENTERAL NUTRITION [Concomitant]
     Active Substance: AMINO ACIDS\DEXTROSE\ELECTROLYTES NOS
  3. ZEGERID [Concomitant]
     Active Substance: OMEPRAZOLE\SODIUM BICARBONATE
  4. COUMADIN [Concomitant]
     Active Substance: WARFARIN SODIUM
  5. CALCIUM VITAMIN D [Concomitant]
     Active Substance: CALCIUM\VITAMIN D
  6. OTHER ALIMENTARY TRACT AND METABOLISM PRODUCT [Concomitant]
  7. CYANOCOBALAMIN. [Concomitant]
     Active Substance: CYANOCOBALAMIN
  8. GABAPENTIN. [Concomitant]
     Active Substance: GABAPENTIN
  9. MULTIVITAMINS [Concomitant]
     Active Substance: VITAMINS

REACTIONS (6)
  - Seizure [None]
  - Drug dose omission [None]
  - Superior vena cava syndrome [None]
  - Cerebrovascular accident [None]
  - Thrombosis [None]
  - Electrolyte imbalance [None]

NARRATIVE: CASE EVENT DATE: 201412
